FAERS Safety Report 5638008-0 (Version None)
Quarter: 2008Q1

REPORT INFORMATION
  Report Type: 
  Country: None (occurrence: None)
  Receive Date: 20080222
  Receipt Date: 20080222
  Transmission Date: 20080703
  Serious: Yes (Other)
  Sender: FDA-Public Use
  Company Number: None

PATIENT
  Age: 39 Year
  Sex: Female
  Weight: 63.5036 kg

DRUGS (4)
  1. PAXIL CR [Suspect]
     Indication: ANXIETY
     Dosage: ONE TABLET DAILY PO
     Route: 048
     Dates: start: 20040830, end: 20070129
  2. PAXIL CR [Suspect]
     Indication: DEPRESSION
     Dosage: ONE TABLET DAILY PO
     Route: 048
     Dates: start: 20040830, end: 20070129
  3. PAXIL CR [Suspect]
     Indication: ANXIETY
     Dosage: ONE TABLET DAILY PO
     Route: 048
     Dates: start: 20070130, end: 20070925
  4. PAXIL CR [Suspect]
     Indication: DEPRESSION
     Dosage: ONE TABLET DAILY PO
     Route: 048
     Dates: start: 20070130, end: 20070925

REACTIONS (6)
  - ALCOHOL USE [None]
  - ALCOHOLISM [None]
  - DRUG WITHDRAWAL SYNDROME [None]
  - IMPULSIVE BEHAVIOUR [None]
  - MANIA [None]
  - SUICIDAL IDEATION [None]
